FAERS Safety Report 20156813 (Version 1)
Quarter: 2021Q4

REPORT INFORMATION
  Report Type: Spontaneous
  Country: US (occurrence: None)
  Receive Date: 20211207
  Receipt Date: 20211207
  Transmission Date: 20220303
  Serious: Yes (Hospitalization)
  Sender: FDA-Public Use
  Company Number: None

PATIENT
  Age: 34 Year
  Sex: Male
  Weight: 79 kg

DRUGS (1)
  1. ETOPOSIDE [Suspect]
     Active Substance: ETOPOSIDE
     Indication: Testis cancer
     Dosage: OTHER FREQUENCY : DAILY X 5;?
     Route: 042
     Dates: start: 20211206, end: 20211206

REACTIONS (4)
  - Chest discomfort [None]
  - Dyspnoea [None]
  - Hyperhidrosis [None]
  - Erythema [None]

NARRATIVE: CASE EVENT DATE: 20211206
